FAERS Safety Report 4731450-1 (Version None)
Quarter: 2005Q3

REPORT INFORMATION
  Report Type: 
  Country: None (occurrence: None)
  Receive Date: 20050801
  Receipt Date: 20050801
  Transmission Date: 20060218
  Serious: Yes (Other)
  Sender: FDA-Public Use
  Company Number: None

PATIENT
  Age: 48 Year
  Sex: Female
  Weight: 49.8957 kg

DRUGS (8)
  1. FEMARA [Suspect]
     Indication: BREAST CANCER
     Dosage: 2.5 MG/DAY
     Dates: start: 19990901, end: 20040901
  2. TAMOXOFIN 20 MG/DAY [Suspect]
     Indication: BREAST CANCER
     Dosage: 20 MG/DAY
     Dates: start: 20051001
  3. LEVOXYL [Concomitant]
  4. FOSAMAX [Concomitant]
  5. KROGER COMPLETE MULTI VITAMINS [Concomitant]
  6. VITAMIN E [Concomitant]
  7. VITAMIN D [Concomitant]
  8. CALCIUM GLUCONATE [Concomitant]

REACTIONS (2)
  - BONE DENSITY DECREASED [None]
  - TOOTH EROSION [None]
